FAERS Safety Report 9432953 (Version 3)
Quarter: 2013Q4

REPORT INFORMATION
  Report Type: Report from Study
  Country: FR (occurrence: FR)
  Receive Date: 20130731
  Receipt Date: 20131001
  Transmission Date: 20140711
  Serious: Yes (Other)
  Sender: FDA-Public Use
  Company Number: FR-ACTELION-A-CH2013-86264

PATIENT
  Age: 35 Year
  Sex: Female
  Weight: 58 kg

DRUGS (13)
  1. TRACLEER [Suspect]
     Indication: SKIN ULCER
     Dosage: 125 MG, BID
     Route: 048
     Dates: start: 20090623, end: 20120410
  2. TRACLEER [Suspect]
     Dosage: 62.5 MG, BID
     Route: 048
     Dates: start: 20090406, end: 20090622
  3. TRACLEER [Suspect]
     Dosage: UNK
     Route: 048
     Dates: start: 2013
  4. PLAQUENIL [Concomitant]
     Dosage: 400 MG (TITER), UNK
  5. CORTANCYL [Concomitant]
     Dosage: 5 MG, QD
  6. CORTANCYL [Concomitant]
     Dosage: 10 MG, QD
     Dates: start: 20121009
  7. CALCITE D [Concomitant]
     Dosage: UNK
  8. MYFORTIC [Concomitant]
     Dosage: UNK
     Dates: end: 201109
  9. TRIATEC [Concomitant]
     Dosage: UNK
     Dates: end: 20120410
  10. PROGESTERONE [Concomitant]
  11. ADALATE [Concomitant]
  12. SALBUTAMOL [Concomitant]
  13. TARDYFERON B9 [Concomitant]

REACTIONS (19)
  - Premature separation of placenta [Recovered/Resolved]
  - Peripartum haemorrhage [Recovered/Resolved]
  - Foetal death [Unknown]
  - Gastrooesophageal reflux disease [Recovered/Resolved]
  - Twin pregnancy [Recovered/Resolved]
  - Face oedema [Recovered/Resolved]
  - Weight increased [Recovered/Resolved]
  - Foetal growth restriction [Recovered/Resolved]
  - Live birth [Unknown]
  - Skin ulcer [Unknown]
  - Pain in extremity [Unknown]
  - Cyanosis [Unknown]
  - Telangiectasia [Unknown]
  - Periarthritis [Unknown]
  - Infected skin ulcer [Recovered/Resolved]
  - Dyspepsia [Unknown]
  - Raynaud^s phenomenon [Not Recovered/Not Resolved]
  - Leukocyturia [Not Recovered/Not Resolved]
  - Cervix carcinoma stage II [Not Recovered/Not Resolved]
